FAERS Safety Report 5010891-1 (Version None)
Quarter: 2006Q2

REPORT INFORMATION
  Report Type: 
  Country: None (occurrence: None)
  Receive Date: 20060525
  Receipt Date: 20060517
  Transmission Date: 20061013
  Serious: Yes (Other)
  Sender: FDA-Public Use
  Company Number: US-MERCK-0605USA03925

PATIENT
  Age: 79 Year
  Sex: Female

DRUGS (1)
  1. FOSAMAX [Suspect]
     Indication: OSTEOPOROSIS
     Route: 048
     Dates: start: 20050801

REACTIONS (4)
  - BONE DENSITY DECREASED [None]
  - BONE MARROW OEDEMA [None]
  - OSTEOARTHRITIS [None]
  - OSTEONECROSIS [None]
